FAERS Safety Report 16354984 (Version 2)
Quarter: 2019Q2

REPORT INFORMATION
  Report Type: Report from Study
  Country: CN (occurrence: CN)
  Receive Date: 20190524
  Receipt Date: 20190611
  Transmission Date: 20190711
  Serious: Yes (Hospitalization, Other)
  Sender: FDA-Public Use
  Company Number: CN-009507513-1905CHN008889

PATIENT
  Age: 62 Year
  Sex: Male
  Weight: 66 kg

DRUGS (10)
  1. EZETROL [Suspect]
     Active Substance: EZETIMIBE
     Indication: CORONARY ARTERY DISEASE
     Dosage: 10 MILLIGRAM, QD
     Route: 048
     Dates: start: 20180512
  2. EZETROL [Suspect]
     Active Substance: EZETIMIBE
     Indication: LIPIDS ABNORMAL
  3. ROSUVASTATIN. [Suspect]
     Active Substance: ROSUVASTATIN
     Indication: LIPIDS ABNORMAL
     Dosage: UNK
     Dates: start: 20180512
  4. ROSUVASTATIN. [Suspect]
     Active Substance: ROSUVASTATIN
     Indication: ARTERIOSCLEROSIS
  5. ASPIRIN. [Suspect]
     Active Substance: ASPIRIN
     Indication: THROMBOSIS PROPHYLAXIS
     Dosage: UNK
     Dates: start: 20180512
  6. PERINDOPRIL [Suspect]
     Active Substance: PERINDOPRIL
     Indication: VENTRICULAR REMODELLING
     Dosage: UNK
     Dates: start: 20180512
  7. RABEPRAZOLE SODIUM. [Suspect]
     Active Substance: RABEPRAZOLE SODIUM
     Indication: PROPHYLAXIS AGAINST GASTROINTESTINAL ULCER
     Dosage: UNK
     Dates: start: 20180512
  8. EZETROL [Suspect]
     Active Substance: EZETIMIBE
     Indication: ARTERIOSCLEROSIS
  9. TICAGRELOR. [Suspect]
     Active Substance: TICAGRELOR
     Indication: THROMBOSIS PROPHYLAXIS
     Dosage: UNK
     Dates: start: 20180512
  10. METOPROLOL. [Suspect]
     Active Substance: METOPROLOL
     Indication: OXYGEN CONSUMPTION
     Dosage: UNK
     Route: 048
     Dates: start: 20180512

REACTIONS (1)
  - Angina unstable [Recovered/Resolved]

NARRATIVE: CASE EVENT DATE: 20180606
